FAERS Safety Report 9107927 (Version 1)
Quarter: 2013Q1

REPORT INFORMATION
  Report Type: Spontaneous
  Country: US (occurrence: US)
  Receive Date: 20130221
  Receipt Date: 20130221
  Transmission Date: 20140127
  Serious: Yes (Hospitalization)
  Sender: FDA-Public Use
  Company Number: US-MYLANLABS-2013S1003030

PATIENT
  Age: 34 Year
  Sex: Male

DRUGS (5)
  1. PHENYTOIN [Suspect]
     Indication: CONVULSION PROPHYLAXIS
     Route: 048
  2. LISINOPRIL [Suspect]
     Dosage: 5 MG/DAY
     Route: 048
  3. FOSPHENYTOIN [Concomitant]
     Indication: CONVULSION PROPHYLAXIS
     Route: 065
  4. DEXAMETHASONE [Concomitant]
     Route: 048
  5. PARACETAMOL [Concomitant]
     Route: 065

REACTIONS (2)
  - Drug reaction with eosinophilia and systemic symptoms [Recovering/Resolving]
  - Angioedema [Recovered/Resolved]
